FAERS Safety Report 4309215-4 (Version None)
Quarter: 2004Q1

REPORT INFORMATION
  Report Type: 
  Country: None (occurrence: None)
  Receive Date: 20040227
  Receipt Date: 20040216
  Transmission Date: 20041129
  Serious: Yes (Hospitalization)
  Sender: FDA-Public Use
  Company Number: 2003AP04560

PATIENT
  Age: 66 Year
  Sex: Female

DRUGS (14)
  1. IRESSA [Suspect]
     Indication: ADENOCARCINOMA
     Dosage: 250 MG DAILY PO
     Route: 048
     Dates: start: 20031206, end: 20031212
  2. IRESSA [Suspect]
     Indication: NON-SMALL CELL LUNG CANCER RECURRENT
     Dosage: 250 MG DAILY PO
     Route: 048
     Dates: start: 20031206, end: 20031212
  3. NAIXAN [Concomitant]
  4. DIAZEPAM [Concomitant]
  5. GASTER [Concomitant]
  6. DIPYRIDAMOLE [Concomitant]
  7. MAGNESIUM OXIDE [Concomitant]
  8. SELBEX [Concomitant]
  9. BUFFERIN [Concomitant]
  10. THYRADIN [Concomitant]
  11. CISPLATIN [Concomitant]
  12. NAVELBINE [Concomitant]
  13. CARBOPLATIN [Concomitant]
  14. TAXOL [Concomitant]

REACTIONS (2)
  - LUNG DISORDER [None]
  - OXYGEN SATURATION DECREASED [None]
